FAERS Safety Report 19469983 (Version 1)
Quarter: 2021Q2

REPORT INFORMATION
  Report Type: Spontaneous
  Country: US (occurrence: US)
  Receive Date: 20210628
  Receipt Date: 20210628
  Transmission Date: 20210717
  Serious: Yes (Other)
  Sender: FDA-Public Use
  Company Number: US-SEATTLE GENETICS-2021SGN03378

PATIENT
  Sex: Female

DRUGS (6)
  1. XELODA [Suspect]
     Active Substance: CAPECITABINE
     Indication: BREAST CANCER FEMALE
  2. TUKYSA [Suspect]
     Active Substance: TUCATINIB
     Dosage: UNK
     Route: 048
  3. TUKYSA [Suspect]
     Active Substance: TUCATINIB
     Indication: BREAST CANCER FEMALE
     Dosage: EVERY 0.5 DAY
     Route: 048
  4. PRILOSEC [Concomitant]
     Active Substance: OMEPRAZOLE MAGNESIUM
  5. TUKYSA [Suspect]
     Active Substance: TUCATINIB
     Dosage: UNK
     Route: 048
  6. HERCEPTIN [Suspect]
     Active Substance: TRASTUZUMAB
     Indication: BREAST CANCER FEMALE

REACTIONS (6)
  - White blood cell count decreased [Unknown]
  - Thrombocytopenia [Unknown]
  - Rash [Unknown]
  - Anxiety [Recovering/Resolving]
  - Asthenia [Recovering/Resolving]
  - Product dose omission issue [Unknown]
